FAERS Safety Report 7778581-X (Version None)
Quarter: 2011Q3

REPORT INFORMATION
  Report Type: 
  Country: None (occurrence: None)
  Receive Date: 20110926
  Receipt Date: 20110916
  Transmission Date: 20111222
  Serious: No
  Sender: FDA-Public Use
  Company Number: US-BAYER-2011-088180

PATIENT
  Sex: Female

DRUGS (2)
  1. MIRENA [Suspect]
     Dosage: 20 MCG/24HR, CONT
     Route: 015
     Dates: start: 20110622
  2. MIRENA [Suspect]
     Dosage: 20 MCG/24HR, CONT
     Route: 015

REACTIONS (2)
  - HYPOMENORRHOEA [None]
  - MENSTRUATION DELAYED [None]
